FAERS Safety Report 7888740-3 (Version None)
Quarter: 2011Q4

REPORT INFORMATION
  Report Type: 
  Country: None (occurrence: None)
  Receive Date: 20111103
  Receipt Date: 20111027
  Transmission Date: 20120403
  Serious: Yes (Other)
  Sender: FDA-Public Use
  Company Number: US-ROCHE-791328

PATIENT
  Sex: Male
  Weight: 74.91 kg

DRUGS (4)
  1. ACCUTANE [Suspect]
     Dates: start: 20010917, end: 20011017
  2. IBUPROFEN [Concomitant]
  3. ACCUTANE [Suspect]
     Indication: ACNE
     Route: 065
  4. ACCUTANE [Suspect]
     Dates: start: 20020101, end: 20020228

REACTIONS (7)
  - IRRITABLE BOWEL SYNDROME [None]
  - INFLAMMATORY BOWEL DISEASE [None]
  - PROCTITIS ULCERATIVE [None]
  - CROHN'S DISEASE [None]
  - DEPRESSION [None]
  - ANAL FISSURE [None]
  - LIP DRY [None]
